FAERS Safety Report 9463635 (Version 1)
Quarter: 2013Q3

REPORT INFORMATION
  Report Type: Spontaneous
  Country: AT (occurrence: AT)
  Receive Date: 20130819
  Receipt Date: 20130819
  Transmission Date: 20140515
  Serious: Yes (Hospitalization)
  Sender: FDA-Public Use
  Company Number: PHHY2013AT087248

PATIENT
  Age: 30 Year
  Sex: Male
  Weight: 85 kg

DRUGS (3)
  1. LEPONEX [Suspect]
     Indication: SCHIZOPHRENIA
     Dosage: 300 MG, UNK
     Route: 048
     Dates: start: 20130704, end: 20130716
  2. ZYPREXA [Concomitant]
     Dosage: 5 MG, UNK
  3. XEPLION [Concomitant]
     Dosage: 150 MG, UNK
     Route: 030

REACTIONS (3)
  - Breast pain [Recovered/Resolved]
  - Myocarditis [Recovered/Resolved]
  - C-reactive protein increased [Unknown]
